FAERS Safety Report 20257619 (Version 2)
Quarter: 2022Q1

REPORT INFORMATION
  Report Type: Spontaneous
  Country: US (occurrence: US)
  Receive Date: 20211230
  Receipt Date: 20220315
  Transmission Date: 20220423
  Serious: Yes (Other)
  Sender: FDA-Public Use
  Company Number: US-SA-SAC20211229000718

PATIENT
  Age: 61 Year
  Sex: Male

DRUGS (1)
  1. ZANTAC [Suspect]
     Active Substance: RANITIDINE HYDROCHLORIDE
     Indication: Dyspepsia
     Dosage: UNK, QW
     Route: 065
     Dates: start: 199606, end: 201206

REACTIONS (1)
  - Prostate cancer stage II [Unknown]

NARRATIVE: CASE EVENT DATE: 20111001
